FAERS Safety Report 8390599-5 (Version None)
Quarter: 2012Q2

REPORT INFORMATION
  Report Type: 
  Country: None (occurrence: None)
  Receive Date: 20120529
  Receipt Date: 20120521
  Transmission Date: 20120825
  Serious: Yes (Other)
  Sender: FDA-Public Use
  Company Number: DE-UCBSA-052496

PATIENT
  Age: 39 Year
  Sex: Female
  Weight: 71 kg

DRUGS (12)
  1. IBUPROFEN [Concomitant]
     Indication: RHEUMATOID ARTHRITIS
     Dates: start: 20050601
  2. CAPVAL [Concomitant]
     Indication: INFLUENZA
     Dosage: DRAGEES, ONCE DAILY
     Dates: start: 20111111, end: 20111206
  3. METOCLOPRAMIDE [Concomitant]
     Indication: MIGRAINE
     Dates: start: 20101101
  4. SUMATRIPTAN [Concomitant]
     Indication: MIGRAINE
     Dosage: AS NECESSARY
     Dates: start: 20101101
  5. PREDNISOLONE [Concomitant]
     Indication: RHEUMATOID ARTHRITIS
     Dosage: 5-20 MG
     Dates: start: 20050601
  6. PREDNISONE [Concomitant]
     Indication: RHEUMATOID ARTHRITIS
     Dates: start: 20111201
  7. CIMZIA [Suspect]
     Indication: RHEUMATOID ARTHRITIS
     Route: 058
     Dates: start: 20110919, end: 20120201
  8. OMEPRAZOLE [Concomitant]
     Indication: PROPHYLAXIS
     Dates: start: 20080101
  9. DIAZEPAM [Concomitant]
     Indication: INSOMNIA
     Dates: start: 20100801
  10. MORPHINE SULFATE [Concomitant]
     Indication: PAIN
     Dates: start: 20100801
  11. OTRIVIN [Concomitant]
     Indication: RHINITIS
     Dosage: UNSPECIFIED DOSE AS NEEDED
     Dates: start: 20070101
  12. MUCOSOLVAN [Concomitant]
     Indication: INFLUENZA
     Dates: start: 20111111, end: 20111206

REACTIONS (3)
  - PREGNANCY ON ORAL CONTRACEPTIVE [None]
  - PREGNANCY [None]
  - ABORTION SPONTANEOUS [None]
